FAERS Safety Report 21848296 (Version 1)
Quarter: 2023Q1

REPORT INFORMATION
  Report Type: Spontaneous
  Country: BE (occurrence: BE)
  Receive Date: 20230111
  Receipt Date: 20230111
  Transmission Date: 20230417
  Serious: Yes (Hospitalization)
  Sender: FDA-Public Use
  Company Number: None

PATIENT
  Age: 76 Year
  Sex: Female
  Weight: 65 kg

DRUGS (21)
  1. PACLITAXEL [Suspect]
     Active Substance: PACLITAXEL
     Indication: Breast cancer
     Dosage: 1 DF
     Route: 042
     Dates: start: 20200629
  2. PACLITAXEL [Suspect]
     Active Substance: PACLITAXEL
     Dosage: 1 DF
     Route: 042
     Dates: start: 20200720
  3. PACLITAXEL [Suspect]
     Active Substance: PACLITAXEL
     Dosage: 1 DF
     Route: 042
     Dates: start: 20200810
  4. PACLITAXEL [Suspect]
     Active Substance: PACLITAXEL
     Dosage: 1 DF
     Route: 042
     Dates: start: 20200831
  5. PACLITAXEL [Suspect]
     Active Substance: PACLITAXEL
     Dosage: 1 DF
     Route: 042
     Dates: start: 20200914
  6. TRASTUZUMAB [Suspect]
     Active Substance: TRASTUZUMAB
     Indication: Breast cancer
     Dosage: 1 DF
     Route: 042
     Dates: start: 20200629
  7. TRASTUZUMAB [Suspect]
     Active Substance: TRASTUZUMAB
     Dosage: 1 DF
     Route: 042
     Dates: start: 20200720
  8. TRASTUZUMAB [Suspect]
     Active Substance: TRASTUZUMAB
     Dosage: 1 DF
     Route: 042
     Dates: start: 20200810
  9. TRASTUZUMAB [Suspect]
     Active Substance: TRASTUZUMAB
     Dosage: 1 DF
     Route: 042
     Dates: start: 20200831
  10. TRASTUZUMAB [Suspect]
     Active Substance: TRASTUZUMAB
     Dosage: 1 DF
     Route: 042
     Dates: start: 20200914
  11. PERTUZUMAB [Suspect]
     Active Substance: PERTUZUMAB
     Indication: Breast cancer
     Dosage: 1 DF
     Route: 042
     Dates: start: 20200629
  12. PERTUZUMAB [Suspect]
     Active Substance: PERTUZUMAB
     Dosage: 1 DF
     Route: 042
     Dates: start: 20200720
  13. PERTUZUMAB [Suspect]
     Active Substance: PERTUZUMAB
     Dosage: 1 DF
     Route: 042
     Dates: start: 20200810
  14. PERTUZUMAB [Suspect]
     Active Substance: PERTUZUMAB
     Dosage: 1 DF
     Route: 042
     Dates: start: 20200831
  15. PERJETA [Suspect]
     Active Substance: PERTUZUMAB
     Indication: Breast cancer
     Dosage: 1 DF
     Route: 042
     Dates: start: 20200629
  16. PERJETA [Suspect]
     Active Substance: PERTUZUMAB
     Dosage: 1 DF
     Route: 042
     Dates: start: 20200720
  17. PERJETA [Suspect]
     Active Substance: PERTUZUMAB
     Dosage: 1 DF
     Route: 042
     Dates: start: 20200810
  18. PERJETA [Suspect]
     Active Substance: PERTUZUMAB
     Dosage: 1 DF
     Route: 042
     Dates: start: 20200831
  19. PERJETA [Suspect]
     Active Substance: PERTUZUMAB
     Dosage: 1 DF
     Route: 042
     Dates: start: 20200914
  20. CHOLECALCIFEROL [Concomitant]
     Active Substance: CHOLECALCIFEROL
     Dosage: UNK
  21. DICLOFENAC [Concomitant]
     Active Substance: DICLOFENAC
     Dosage: UNK

REACTIONS (8)
  - Tachycardia [Recovered/Resolved]
  - Hypertension [Recovered/Resolved]
  - Back pain [Recovered/Resolved]
  - Hypersensitivity [Recovered/Resolved]
  - Blindness [Recovered/Resolved]
  - Pain [Recovered/Resolved]
  - Abdominal pain [Recovered/Resolved]
  - Nausea [Recovered/Resolved]

NARRATIVE: CASE EVENT DATE: 20200831
